FAERS Safety Report 11184486 (Version 1)
Quarter: 2015Q2

REPORT INFORMATION
  Report Type: Spontaneous
  Country: JP (occurrence: JP)
  Receive Date: 20150612
  Receipt Date: 20150612
  Transmission Date: 20150821
  Serious: Yes (Other)
  Sender: FDA-Public Use
  Company Number: JP-SA-2015SA079338

PATIENT
  Sex: Male
  Weight: 78 kg

DRUGS (6)
  1. TAKEPRON [Suspect]
     Active Substance: LANSOPRAZOLE
     Route: 065
  2. VANCOMYCIN [Suspect]
     Active Substance: VANCOMYCIN
     Route: 065
  3. MYSLEE [Suspect]
     Active Substance: ZOLPIDEM TARTRATE
     Route: 065
  4. FUNGUARD [Suspect]
     Active Substance: MICAFUNGIN SODIUM
     Route: 065
  5. DIART [Suspect]
     Active Substance: AZOSEMIDE
     Route: 065
  6. BIO-THREE [Suspect]
     Active Substance: HERBALS
     Route: 065

REACTIONS (1)
  - Drug eruption [Unknown]
